FAERS Safety Report 7198036-3 (Version None)
Quarter: 2010Q4

REPORT INFORMATION
  Report Type: 
  Country: None (occurrence: None)
  Receive Date: 20101227
  Receipt Date: 20101215
  Transmission Date: 20110411
  Serious: Yes (Hospitalization)
  Sender: FDA-Public Use
  Company Number: FR-SANOFI-AVENTIS-2010SA077166

PATIENT
  Sex: Female

DRUGS (10)
  1. ARAVA [Suspect]
     Route: 065
     Dates: end: 20100301
  2. ARAVA [Suspect]
     Dates: start: 20100527
  3. ENBREL [Suspect]
     Indication: RHEUMATOID ARTHRITIS
     Route: 058
     Dates: end: 20100301
  4. ZOCOR [Concomitant]
  5. PANTOPRAZOLE [Concomitant]
  6. ATHYMIL [Concomitant]
  7. PROZAC [Concomitant]
  8. ESIDRIX [Concomitant]
  9. LEVOTHYROX [Concomitant]
  10. IRBESARTAN [Concomitant]

REACTIONS (7)
  - ERYSIPELAS [None]
  - ERYTHEMA [None]
  - LIMB INJURY [None]
  - OEDEMA PERIPHERAL [None]
  - PAIN IN EXTREMITY [None]
  - SKIN NECROSIS [None]
  - WOUND INFECTION STAPHYLOCOCCAL [None]
